FAERS Safety Report 23486630 (Version 2)
Quarter: 2024Q2

REPORT INFORMATION
  Report Type: Report from Study
  Country: US (occurrence: US)
  Receive Date: 20240206
  Receipt Date: 20240411
  Transmission Date: 20240716
  Serious: Yes (Disabling, Other)
  Sender: FDA-Public Use
  Company Number: US-GILEAD-2024-0661048

PATIENT
  Sex: Male

DRUGS (1)
  1. AMBRISENTAN [Suspect]
     Active Substance: AMBRISENTAN
     Indication: Pulmonary hypertension
     Dosage: 10 MG, QD
     Route: 065
     Dates: start: 20190221

REACTIONS (3)
  - Fall [Unknown]
  - Rash [Recovered/Resolved]
  - Dyspnoea [Recovered/Resolved]
